FAERS Safety Report 10072024 (Version 1)
Quarter: 2014Q2

REPORT INFORMATION
  Report Type: Spontaneous
  Country: US (occurrence: None)
  Receive Date: 20140410
  Receipt Date: 20140410
  Transmission Date: 20141212
  Serious: Yes (Death, Life-Threatening, Hospitalization, Disabling, Other)
  Sender: FDA-Public Use
  Company Number: None

PATIENT
  Age: 76 Year
  Sex: 0

DRUGS (1)
  1. LIPITOR [Suspect]
     Indication: BLOOD CHOLESTEROL

REACTIONS (10)
  - Type 2 diabetes mellitus [None]
  - Contusion [None]
  - Economic problem [None]
  - Thyroid disorder [None]
  - Peripheral swelling [None]
  - Erythema [None]
  - Dyspnoea [None]
  - Cerebrovascular accident [None]
  - Diabetic complication [None]
  - Drug ineffective [None]
